FAERS Safety Report 8319683-9 (Version None)
Quarter: 2012Q2

REPORT INFORMATION
  Report Type: 
  Country: None (occurrence: None)
  Receive Date: 20120427
  Receipt Date: 20120416
  Transmission Date: 20120825
  Serious: Yes (Hospitalization)
  Sender: FDA-Public Use
  Company Number: TR-ROXANE LABORATORIES, INC.-2012-EU-02101GD

PATIENT
  Age: 12 Year
  Sex: Male

DRUGS (1)
  1. PREDNISONE [Suspect]
     Indication: NEPHROTIC SYNDROME
     Dosage: 2 MG/KG (MAX 60 MG)

REACTIONS (6)
  - ANXIETY [None]
  - MEMORY IMPAIRMENT [None]
  - AGGRESSION [None]
  - PERSECUTORY DELUSION [None]
  - PSYCHOTIC DISORDER [None]
  - ABNORMAL BEHAVIOUR [None]
